FAERS Safety Report 23184293 (Version 1)
Quarter: 2023Q4

REPORT INFORMATION
  Report Type: Spontaneous
  Country: GB (occurrence: GB)
  Receive Date: 20231115
  Receipt Date: 20231115
  Transmission Date: 20240109
  Serious: Yes (Other)
  Sender: FDA-Public Use
  Company Number: GB-CELLTRION INC.-2023GB021829

PATIENT

DRUGS (1)
  1. INFLIXIMAB [Suspect]
     Active Substance: INFLIXIMAB
     Indication: Crohn^s disease
     Dosage: 120 MG
     Route: 058

REACTIONS (9)
  - Haematochezia [Unknown]
  - Blood creatinine abnormal [Unknown]
  - Malaise [Unknown]
  - Vulvovaginal candidiasis [Unknown]
  - Rash [Recovering/Resolving]
  - Hypertension [Unknown]
  - Maternal exposure during pregnancy [Unknown]
  - Drug ineffective [Unknown]
  - Intentional dose omission [Unknown]
